FAERS Safety Report 9144149 (Version 1)
Quarter: 2013Q1

REPORT INFORMATION
  Report Type: Spontaneous
  Country: ES (occurrence: ES)
  Receive Date: 20130306
  Receipt Date: 20130306
  Transmission Date: 20140127
  Serious: Yes (Other)
  Sender: FDA-Public Use
  Company Number: ES-ROCHE-1196688

PATIENT
  Age: 44 Year
  Sex: Female

DRUGS (2)
  1. XENICAL [Suspect]
     Indication: WEIGHT DECREASED
     Route: 048
     Dates: start: 201212
  2. EUTIROX [Concomitant]

REACTIONS (1)
  - Metrorrhagia [Recovered/Resolved]
